FAERS Safety Report 5946444-8 (Version None)
Quarter: 2008Q4

REPORT INFORMATION
  Report Type: 
  Country: None (occurrence: None)
  Receive Date: 20081106
  Receipt Date: 20081106
  Transmission Date: 20090506
  Serious: Yes (Death)
  Sender: FDA-Public Use
  Company Number: None

PATIENT
  Age: 19 Year
  Sex: Female
  Weight: 80 kg

DRUGS (1)
  1. DESOGEN [Suspect]
     Indication: CONTRACEPTION
     Dosage: 1 TAB DAILY PO
     Route: 048
     Dates: start: 20080729, end: 20080818

REACTIONS (25)
  - ACUTE MYOCARDIAL INFARCTION [None]
  - ALANINE AMINOTRANSFERASE INCREASED [None]
  - ANOXIC ENCEPHALOPATHY [None]
  - ASPARTATE AMINOTRANSFERASE INCREASED [None]
  - BLOOD CALCIUM DECREASED [None]
  - BLOOD GLUCOSE INCREASED [None]
  - BLOOD MAGNESIUM INCREASED [None]
  - BLOOD POTASSIUM INCREASED [None]
  - BLOOD SODIUM INCREASED [None]
  - BLOOD TRIGLYCERIDES INCREASED [None]
  - BRAIN DEATH [None]
  - BUNDLE BRANCH BLOCK RIGHT [None]
  - CALCIUM IONISED DECREASED [None]
  - CARDIAC ARREST [None]
  - CARDIO-RESPIRATORY ARREST [None]
  - COAGULOPATHY [None]
  - EMBOLISM [None]
  - HAEMOGLOBIN DECREASED [None]
  - HAEMORRHAGE [None]
  - NODAL ARRHYTHMIA [None]
  - PULMONARY EMBOLISM [None]
  - PUPIL FIXED [None]
  - RIGHT VENTRICULAR HYPERTROPHY [None]
  - SUPRAVENTRICULAR TACHYCARDIA [None]
  - WHITE BLOOD CELL COUNT INCREASED [None]
